FAERS Safety Report 8283246-4 (Version None)
Quarter: 2012Q2

REPORT INFORMATION
  Report Type: 
  Country: None (occurrence: None)
  Receive Date: 20120413
  Receipt Date: 20120410
  Transmission Date: 20120825
  Serious: Yes (Hospitalization)
  Sender: FDA-Public Use
  Company Number: US-MERCK-1112USA02418

PATIENT
  Age: 65 Year
  Sex: Female

DRUGS (5)
  1. CALCIUM (UNSPECIFIED) [Concomitant]
     Dosage: TO PRESENT
     Route: 065
     Dates: start: 19900101
  2. VITAMIN D (UNSPECIFIED) [Concomitant]
     Dosage: TO PRESENT
     Route: 065
     Dates: start: 19900101
  3. VITAMIN E [Concomitant]
     Dosage: TO PRESENT
     Route: 065
     Dates: start: 19900101
  4. FOSAMAX [Suspect]
     Indication: OSTEOPENIA
     Route: 048
     Dates: start: 20060101, end: 20101201
  5. OMEGA-3 MARINE TRIGLYCERIDES [Concomitant]
     Dosage: TO PRESENT
     Route: 065
     Dates: start: 19900101

REACTIONS (7)
  - VITAMIN D DEFICIENCY [None]
  - HYPERTENSION [None]
  - BLOOD CHOLESTEROL INCREASED [None]
  - FEMUR FRACTURE [None]
  - DENTAL CARIES [None]
  - DEVICE FAILURE [None]
  - ABSCESS [None]
